FAERS Safety Report 12694467 (Version 1)
Quarter: 2016Q3

REPORT INFORMATION
  Report Type: Spontaneous
  Country: FR (occurrence: FR)
  Receive Date: 20160829
  Receipt Date: 20160829
  Transmission Date: 20161109
  Serious: Yes (Death)
  Sender: FDA-Public Use
  Company Number: FR-PFIZER INC-3260073

PATIENT
  Sex: Female

DRUGS (5)
  1. ATRACURIUM BESILATE [Suspect]
     Active Substance: ATRACURIUM BESYLATE
     Indication: COMPLETED SUICIDE
     Dosage: UNK
  2. CISATRACURIUM BESILATE [Suspect]
     Active Substance: CISATRACURIUM BESYLATE
     Indication: COMPLETED SUICIDE
     Dosage: UNK
  3. PROPOFOL. [Suspect]
     Active Substance: PROPOFOL
     Indication: COMPLETED SUICIDE
     Dosage: UNK
  4. MIDAZOLAM [Suspect]
     Active Substance: MIDAZOLAM\MIDAZOLAM HYDROCHLORIDE
     Indication: COMPLETED SUICIDE
     Dosage: UNK
  5. AMIODARONE [Suspect]
     Active Substance: AMIODARONE
     Indication: COMPLETED SUICIDE
     Dosage: UNK

REACTIONS (5)
  - Toxicity to various agents [Fatal]
  - Respiratory failure [Fatal]
  - Cardiogenic shock [Fatal]
  - Hypotension [Fatal]
  - Coma [Fatal]
